FAERS Safety Report 13964233 (Version 1)
Quarter: 2017Q3

REPORT INFORMATION
  Report Type: Spontaneous
  Country: US (occurrence: US)
  Receive Date: 20170913
  Receipt Date: 20170913
  Transmission Date: 20171128
  Serious: Yes (Other)
  Sender: FDA-Public Use
  Company Number: US-BAYER-2017-168662

PATIENT
  Age: 82 Year
  Sex: Male
  Weight: 64 kg

DRUGS (3)
  1. ALKA-SELTZER PLUS SEVERE COLD, MUCUS AND CONGESTION [Suspect]
     Active Substance: ACETAMINOPHEN\DEXTROMETHORPHAN HYDROBROMIDE\GUAIFENESIN\PHENYLEPHRINE HYDROCHLORIDE
     Indication: HYPERSENSITIVITY
     Dosage: 1 DF, WITH WATER OR ICE CREAM DOSE
     Route: 048
  2. PERSANTINE [Concomitant]
     Active Substance: DIPYRIDAMOLE
  3. ALKA-SELTZER PLUS SEVERE COLD, MUCUS AND CONGESTION [Suspect]
     Active Substance: ACETAMINOPHEN\DEXTROMETHORPHAN HYDROBROMIDE\GUAIFENESIN\PHENYLEPHRINE HYDROCHLORIDE
     Indication: NASOPHARYNGITIS

REACTIONS (3)
  - Wrong technique in product usage process [Unknown]
  - Product use complaint [None]
  - Choking [Unknown]
